FAERS Safety Report 6150578-5 (Version None)
Quarter: 2009Q2

REPORT INFORMATION
  Report Type: 
  Country: None (occurrence: None)
  Receive Date: 20090409
  Receipt Date: 20090326
  Transmission Date: 20091009
  Serious: Yes (Other)
  Sender: FDA-Public Use
  Company Number: US-PFIZER INC-2009190045

PATIENT
  Sex: Male
  Weight: 94.331 kg

DRUGS (7)
  1. DILANTIN [Interacting]
     Indication: CONVULSION
     Dosage: 300 MG, 2X/DAY
     Dates: start: 20071001
  2. PHENYTOIN [Suspect]
     Indication: CONVULSION
     Dosage: UNK
  3. TEGRETOL [Suspect]
     Indication: CONVULSION
     Dosage: UNK
  4. PAXIL [Suspect]
     Dosage: UNK
     Dates: start: 20080101
  5. ALL OTHER THERAPEUTIC PRODUCTS [Interacting]
     Indication: ANXIETY
     Dosage: UNK
     Dates: end: 20080101
  6. ALL OTHER THERAPEUTIC PRODUCTS [Interacting]
     Indication: DEPRESSION
  7. ALL OTHER THERAPEUTIC PRODUCTS [Suspect]
     Dates: start: 20080101, end: 20080101

REACTIONS (4)
  - CONVULSION [None]
  - DRUG INTERACTION [None]
  - MUSCLE SPASMS [None]
  - TONGUE DISORDER [None]
